FAERS Safety Report 9926637 (Version 1)
Quarter: 2014Q1

REPORT INFORMATION
  Report Type: Spontaneous
  Country: US (occurrence: US)
  Receive Date: 20140226
  Receipt Date: 20140226
  Transmission Date: 20141002
  Serious: No
  Sender: FDA-Public Use
  Company Number: US-AMGEN-USASP2013076084

PATIENT
  Age: 40 Year
  Sex: Female

DRUGS (3)
  1. ENBREL [Suspect]
     Indication: RHEUMATOID ARTHRITIS
     Dosage: 50 MG, QWK
     Route: 065
     Dates: start: 20120601, end: 201309
  2. HUMIRA [Concomitant]
     Dosage: UNK
  3. METHOTREXAAT                       /00113801/ [Concomitant]
     Dosage: 15 MG, QWK
     Route: 048
     Dates: start: 20120630

REACTIONS (1)
  - Arthritis [Not Recovered/Not Resolved]
